FAERS Safety Report 18724731 (Version 5)
Quarter: 2021Q1

REPORT INFORMATION
  Report Type: Spontaneous
  Country: US (occurrence: US)
  Receive Date: 20210111
  Receipt Date: 20210223
  Transmission Date: 20210419
  Serious: Yes (Other)
  Sender: FDA-Public Use
  Company Number: US-PFIZER INC-2020478387

PATIENT
  Age: 70 Year
  Sex: Female
  Weight: 63.49 kg

DRUGS (4)
  1. PREMARIN [Suspect]
     Active Substance: ESTROGENS, CONJUGATED
     Indication: HORMONE REPLACEMENT THERAPY
     Dosage: 0.65 MG, ALTERNATE DAY
     Route: 048
  2. PREMARIN [Suspect]
     Active Substance: ESTROGENS, CONJUGATED
     Dosage: 0.625 MG, ALTERNATE DAY
     Dates: start: 2016, end: 2020
  3. PREMARIN [Suspect]
     Active Substance: ESTROGENS, CONJUGATED
     Dosage: 0.9 MG, ALTERNATE DAY
     Dates: start: 20210128
  4. PREMARIN [Suspect]
     Active Substance: ESTROGENS, CONJUGATED
     Indication: HOT FLUSH
     Dosage: 10 MG, ALTERNATE DAY
     Dates: start: 1975

REACTIONS (4)
  - Cataract [Unknown]
  - Intentional product misuse [Unknown]
  - Product prescribing error [Unknown]
  - Angina pectoris [Unknown]
